FAERS Safety Report 5353444-8 (Version None)
Quarter: 2007Q2

REPORT INFORMATION
  Report Type: 
  Country: None (occurrence: None)
  Receive Date: 20070612
  Receipt Date: 20070604
  Transmission Date: 20071010
  Serious: Yes (Other)
  Sender: FDA-Public Use
  Company Number: PHBS2007JP08733

PATIENT
  Age: 71 Year
  Sex: Female

DRUGS (2)
  1. ZOMETA [Suspect]
     Indication: METASTASIS
  2. AREDIA [Suspect]
     Indication: METASTASIS

REACTIONS (8)
  - LIP EROSION [None]
  - LOCAL SWELLING [None]
  - METASTASES TO BONE [None]
  - METASTASIS [None]
  - OSTEONECROSIS [None]
  - PRIMARY SEQUESTRUM [None]
  - PURULENT DISCHARGE [None]
  - WOUND DEBRIDEMENT [None]
